FAERS Safety Report 4837215-4 (Version None)
Quarter: 2005Q4

REPORT INFORMATION
  Report Type: 
  Country: None (occurrence: None)
  Receive Date: 20051122
  Receipt Date: 20051106
  Transmission Date: 20060501
  Serious: Yes (Hospitalization, Disabling)
  Sender: FDA-Public Use
  Company Number: SP00592

PATIENT
  Age: 64 Year
  Sex: Female
  Weight: 58.9676 kg

DRUGS (3)
  1. VISICOL [Suspect]
     Indication: COLONOSCOPY
     Dosage: 28 TAB/ONCE, ORAL
     Route: 048
     Dates: start: 20050912, end: 20050912
  2. PAXIL [Concomitant]
  3. PRILOSEC [Concomitant]

REACTIONS (9)
  - BRAIN DAMAGE [None]
  - CONVULSION [None]
  - IMPAIRED WORK ABILITY [None]
  - INFECTION [None]
  - LOSS OF CONSCIOUSNESS [None]
  - OVERDOSE [None]
  - PNEUMONIA [None]
  - UNEVALUABLE EVENT [None]
  - VOMITING [None]
